FAERS Safety Report 5575534-7 (Version None)
Quarter: 2007Q4

REPORT INFORMATION
  Report Type: 
  Country: None (occurrence: None)
  Receive Date: 20071227
  Receipt Date: 20071224
  Transmission Date: 20080405
  Serious: Yes (Disabling)
  Sender: FDA-Public Use
  Company Number: TR-MERCK-0712TUR00007

PATIENT
  Age: 61 Year
  Sex: Male

DRUGS (1)
  1. ZOCOR [Suspect]
     Indication: HYPERLIPIDAEMIA
     Route: 065
     Dates: start: 19950101, end: 19970101

REACTIONS (2)
  - DYSPHAGIA [None]
  - MYOPATHY [None]
